FAERS Safety Report 16361601 (Version 2)
Quarter: 2019Q3

REPORT INFORMATION
  Report Type: Spontaneous
  Country: US (occurrence: US)
  Receive Date: 20190528
  Receipt Date: 20190731
  Transmission Date: 20191004
  Serious: Yes (Hospitalization)
  Sender: FDA-Public Use
  Company Number: US-PFIZER INC-2018409387

PATIENT
  Age: 61 Year
  Sex: Male
  Weight: 77.98 kg

DRUGS (7)
  1. TACROLIMUS. [Concomitant]
     Active Substance: TACROLIMUS
     Indication: LIVER TRANSPLANT REJECTION
     Dosage: 0.5 MG, 2X/DAY
     Route: 048
     Dates: start: 20161114
  2. RAPAMUNE [Suspect]
     Active Substance: SIROLIMUS
     Indication: LIVER TRANSPLANT REJECTION
     Dosage: 2 MG, 1X/DAY (IN THE MORNING)
     Route: 048
     Dates: start: 20161114
  3. QUETIAPINE. [Concomitant]
     Active Substance: QUETIAPINE
     Indication: ANXIETY
     Dosage: 200 MG, 1X/DAY
     Route: 048
  4. HYDROXYZINE [Concomitant]
     Active Substance: HYDROXYZINE HYDROCHLORIDE
     Indication: ANXIETY
     Dosage: 50 MG, 1X/DAY
     Route: 048
  5. AMLODIPINE [Concomitant]
     Active Substance: AMLODIPINE BESYLATE
     Indication: BLOOD PRESSURE ABNORMAL
     Dosage: 5 MG, 1X/DAY
     Route: 048
  6. DESCOVY [Concomitant]
     Active Substance: EMTRICITABINE\TENOFOVIR ALAFENAMIDE FUMARATE
     Indication: HIV INFECTION
     Dosage: 200 MG, 1X/DAY
     Route: 048
  7. CITALOPRAM [Concomitant]
     Active Substance: CITALOPRAM HYDROBROMIDE
     Indication: ANXIETY
     Dosage: 20 MG, 1X/DAY
     Route: 048

REACTIONS (3)
  - Weight increased [Unknown]
  - Off label use [Recovered/Resolved]
  - Product use in unapproved indication [Recovered/Resolved]

NARRATIVE: CASE EVENT DATE: 20161114
